FAERS Safety Report 16765652 (Version 2)
Quarter: 2019Q3

REPORT INFORMATION
  Report Type: Report from Study
  Country: US (occurrence: US)
  Receive Date: 20190903
  Receipt Date: 20190910
  Transmission Date: 20191005
  Serious: No
  Sender: FDA-Public Use
  Company Number: US-AMGEN-USASL2019138713

PATIENT
  Age: 40 Year
  Sex: Female
  Weight: 101.2 kg

DRUGS (2)
  1. ENBREL [Suspect]
     Active Substance: ETANERCEPT
     Indication: PSORIATIC ARTHROPATHY
     Dosage: 50 MILLIGRAM, QWK
     Route: 065
     Dates: start: 20190730, end: 2019
  2. ENBREL [Suspect]
     Active Substance: ETANERCEPT
     Dosage: UNK
     Route: 065
     Dates: start: 2019

REACTIONS (5)
  - Tenderness [Unknown]
  - Hypertension [Unknown]
  - Accidental exposure to product [Unknown]
  - Fibromyalgia [Unknown]
  - Device issue [Unknown]

NARRATIVE: CASE EVENT DATE: 2019
